FAERS Safety Report 24526572 (Version 1)
Quarter: 2024Q4

REPORT INFORMATION
  Report Type: Spontaneous
  Country: US (occurrence: US)
  Receive Date: 20241021
  Receipt Date: 20241021
  Transmission Date: 20250115
  Serious: No
  Sender: ROCHE
  Company Number: US-ROCHE-3440607

PATIENT
  Sex: Male

DRUGS (1)
  1. ZELBORAF [Suspect]
     Active Substance: VEMURAFENIB
     Indication: Chronic lymphocytic leukaemia
     Dosage: 3 TABLETS
     Route: 048
     Dates: start: 20130507

REACTIONS (3)
  - Intentional product misuse [Unknown]
  - No adverse event [Unknown]
  - Off label use [Unknown]
